FAERS Safety Report 9202354 (Version 1)
Quarter: 2013Q2

REPORT INFORMATION
  Report Type: Spontaneous
  Country: US (occurrence: US)
  Receive Date: 20130401
  Receipt Date: 20130401
  Transmission Date: 20140414
  Serious: Yes (Other)
  Sender: FDA-Public Use
  Company Number: US-ELI_LILLY_AND_COMPANY-US201303007850

PATIENT
  Sex: Male

DRUGS (6)
  1. HUMALOG LISPRO [Suspect]
     Indication: DIABETES MELLITUS
  2. LANTUS [Concomitant]
  3. CYMBALTA [Concomitant]
     Indication: NEUROPATHY PERIPHERAL
  4. BUMEX [Concomitant]
     Indication: DIURETIC THERAPY
  5. BABY ASPIRIN [Concomitant]
  6. VITAMIN D [Concomitant]
     Dosage: 50000 U, MONTHLY (1/M)

REACTIONS (7)
  - Nephropathy [Not Recovered/Not Resolved]
  - Hypoglycaemic seizure [Unknown]
  - Blindness unilateral [Not Recovered/Not Resolved]
  - Retinal tear [Unknown]
  - Polyneuropathy [Not Recovered/Not Resolved]
  - Cataract [Unknown]
  - Glycosylated haemoglobin decreased [Unknown]
